FAERS Safety Report 4779926-5 (Version None)
Quarter: 2005Q3

REPORT INFORMATION
  Report Type: 
  Country: None (occurrence: None)
  Receive Date: 20050914
  Receipt Date: 20050627
  Transmission Date: 20060218
  Serious: Yes (Hospitalization)
  Sender: FDA-Public Use
  Company Number: 163-20785-05060240

PATIENT
  Age: 82 Year
  Sex: Male

DRUGS (13)
  1. THALOMID [Suspect]
     Indication: METASTASES TO BONE
     Dosage: 100 MG, AT BEDTIME, ORAL
     Route: 048
     Dates: start: 20041220
  2. THALOMID [Suspect]
     Indication: METASTASES TO LYMPH NODES
     Dosage: 100 MG, AT BEDTIME, ORAL
     Route: 048
     Dates: start: 20041220
  3. THALOMID [Suspect]
     Indication: PROSTATE CANCER
     Dosage: 100 MG, AT BEDTIME, ORAL
     Route: 048
     Dates: start: 20041220
  4. THALOMID [Suspect]
     Indication: PROSTATE CANCER METASTATIC
     Dosage: 100 MG, AT BEDTIME, ORAL
     Route: 048
     Dates: start: 20041220
  5. TAXOTERE [Suspect]
     Indication: PROSTATE CANCER
     Dosage: INTRAVENOUS
     Route: 042
     Dates: start: 20041220, end: 20050512
  6. EMCYT [Suspect]
     Indication: PROSTATE CANCER
  7. FUROSEMIDE [Concomitant]
  8. ZYRTEC [Concomitant]
  9. LIPITOR [Concomitant]
  10. VASOTEC [Concomitant]
  11. METOPROLOL [Concomitant]
  12. OCTAVITE (CALCIUM CARBONATE) [Concomitant]
  13. ASPIRIN [Concomitant]

REACTIONS (4)
  - ASTHENIA [None]
  - CARDIAC FAILURE [None]
  - CAROTID ARTERY OCCLUSION [None]
  - DIZZINESS [None]
